FAERS Safety Report 7546767-5 (Version None)
Quarter: 2011Q2

REPORT INFORMATION
  Report Type: 
  Country: None (occurrence: None)
  Receive Date: 20110614
  Receipt Date: 20110609
  Transmission Date: 20111010
  Serious: Yes (Hospitalization)
  Sender: FDA-Public Use
  Company Number: Z0009786A

PATIENT
  Sex: Female
  Weight: 103 kg

DRUGS (5)
  1. BISOPROLOL FUMARATE [Concomitant]
     Indication: HYPERTENSION
     Route: 048
  2. CHLORAMBUCIL [Suspect]
     Route: 048
     Dates: start: 20110329
  3. ENALAPRIL MALEATE [Concomitant]
     Indication: HYPERTENSION
     Dosage: 20MG PER DAY
     Route: 048
  4. SORMODREN [Concomitant]
     Indication: PARKINSON'S DISEASE
     Dosage: 4MG UNKNOWN
     Route: 048
  5. OXYCODAN [Concomitant]
     Indication: PAIN
     Dosage: 10MG UNKNOWN
     Route: 048

REACTIONS (1)
  - DIZZINESS [None]
